FAERS Safety Report 9722620 (Version 1)
Quarter: 2013Q4

REPORT INFORMATION
  Report Type: Spontaneous
  Country: US (occurrence: US)
  Receive Date: 20131202
  Receipt Date: 20131202
  Transmission Date: 20140711
  Serious: No
  Sender: FDA-Public Use
  Company Number: US-PFIZER INC-2013340171

PATIENT
  Age: 25 Year
  Sex: Female
  Weight: 54.42 kg

DRUGS (6)
  1. DOXYCYCLINE HYCLATE [Suspect]
     Dosage: UNK
     Route: 042
  2. CLINDAMYCIN PHOSPHATE [Suspect]
     Dosage: UNK
     Route: 042
  3. VANCOMYCIN HCL [Suspect]
     Dosage: UNK
     Route: 042
  4. DAPTOMYCIN [Suspect]
     Dosage: UNK
     Route: 042
  5. KEFLEX [Suspect]
     Dosage: UNK
     Route: 042
  6. BACTRIM [Suspect]
     Dosage: UNK
     Route: 042

REACTIONS (5)
  - Drug ineffective [Unknown]
  - Drug resistance [Unknown]
  - Impaired work ability [Unknown]
  - Activities of daily living impaired [Unknown]
  - Abscess [Unknown]
